FAERS Safety Report 8776653 (Version 2)
Quarter: 2012Q4

REPORT INFORMATION
  Report Type: 
  Country: US (occurrence: US)
  Receive Date: 20120910
  Receipt Date: 20121205
  Transmission Date: 20130627
  Serious: Yes (Hospitalization)
  Sender: FDA-Public Use
  Company Number: US-MPIJNJ-2012-05200

PATIENT
  Age: 70 Year
  Sex: Male
  Weight: 77.2 kg

DRUGS (3)
  1. VELCADE [Suspect]
     Indication: LYMPHOMA
     Dosage: 2.6 mg, Cyclic
     Route: 042
     Dates: start: 20120307, end: 20120828
  2. EVEROLIMUS [Suspect]
     Indication: LYMPHOMA
     Dosage: 5 mg, UNK
     Route: 048
     Dates: start: 20120307, end: 20120829
  3. EVEROLIMUS [Suspect]
     Dosage: 5 mg, Cyclic
     Route: 048

REACTIONS (1)
  - Pain [Recovering/Resolving]
